FAERS Safety Report 5597455-6 (Version None)
Quarter: 2007Q4

REPORT INFORMATION
  Report Type: 
  Country: None (occurrence: None)
  Receive Date: 20071221
  Receipt Date: 20070827
  Transmission Date: 20080405
  Serious: No
  Sender: FDA-Public Use
  Company Number: SPV1-2007-03976

PATIENT
  Age: 40 Year
  Sex: Female
  Weight: 74.8 kg

DRUGS (11)
  1. VYVANSE [Suspect]
     Indication: ATTENTION DEFICIT/HYPERACTIVITY DISORDER
     Dosage: 50 MG, 1X/DAY:QD, ORAL
     Route: 048
     Dates: start: 20070823
  2. LEXAPRO [Concomitant]
  3. PRILOSEC /00661201/ (OMEPRAZOLE) [Concomitant]
  4. LISINOPRIL/HYDROCHLOROTHIAZIDE (HYDROCHLOROTHIAZIDE, LISINOPRIL) [Concomitant]
  5. KLONOPIN [Concomitant]
  6. ROBAXIN /00047901/ (METHOCARBAMOL) [Concomitant]
  7. SOMA [Concomitant]
  8. MOBIC [Concomitant]
  9. POTASSIUM (POTASSIUM) [Concomitant]
  10. WELLBUTRIN XL [Concomitant]
  11. TRILEPTAL [Concomitant]

REACTIONS (6)
  - CHEILITIS [None]
  - DRY MOUTH [None]
  - GINGIVAL DISCOLOURATION [None]
  - GINGIVAL PAIN [None]
  - LIP SWELLING [None]
  - OFF LABEL USE [None]
